FAERS Safety Report 9224079 (Version 5)
Quarter: 2013Q3

REPORT INFORMATION
  Report Type: Spontaneous
  Country: US (occurrence: US)
  Receive Date: 20130411
  Receipt Date: 20130718
  Transmission Date: 20140515
  Serious: No
  Sender: FDA-Public Use
  Company Number: US-009507513-1304USA004345

PATIENT
  Age: 24 Year
  Sex: Female

DRUGS (1)
  1. NEXPLANON [Suspect]
     Indication: CONTRACEPTION
     Dosage: 1 ROD, UNK
     Route: 059
     Dates: start: 201206, end: 2013

REACTIONS (6)
  - Malaise [Unknown]
  - Mood altered [Unknown]
  - Vaginal haemorrhage [Unknown]
  - Headache [Unknown]
  - Device kink [Unknown]
  - Device breakage [Unknown]
